FAERS Safety Report 25582904 (Version 1)
Quarter: 2025Q3

REPORT INFORMATION
  Report Type: Spontaneous
  Country: US (occurrence: US)
  Receive Date: 20250720
  Receipt Date: 20250720
  Transmission Date: 20251020
  Serious: No
  Sender: SANOFI AVENTIS
  Company Number: US-SA-2025SA203546

PATIENT
  Sex: Female

DRUGS (12)
  1. DUPIXENT [Suspect]
     Active Substance: DUPILUMAB
     Indication: Asthma
     Route: 058
  2. DUPIXENT [Suspect]
     Active Substance: DUPILUMAB
     Dosage: 600 MG, QOW
     Route: 058
  3. BIOTIN [Concomitant]
     Active Substance: BIOTIN
  4. COLLAGEN [Concomitant]
     Active Substance: COLLAGEN
  5. PROTEIN [Concomitant]
     Active Substance: PROTEIN
  6. ATORVASTATIN [Concomitant]
     Active Substance: ATORVASTATIN
  7. BUDESONIDE [Concomitant]
     Active Substance: BUDESONIDE
  8. CELEBREX [Concomitant]
     Active Substance: CELECOXIB
  9. ESTRADIOL [Concomitant]
     Active Substance: ESTRADIOL
  10. FLUOXETINE [Concomitant]
     Active Substance: FLUOXETINE HYDROCHLORIDE
  11. ZOLMITRIPTAN [Concomitant]
     Active Substance: ZOLMITRIPTAN
  12. ZYRTEC [Concomitant]
     Active Substance: CETIRIZINE HYDROCHLORIDE

REACTIONS (5)
  - Chest discomfort [Not Recovered/Not Resolved]
  - Productive cough [Recovering/Resolving]
  - Fatigue [Not Recovered/Not Resolved]
  - Injection site pain [Not Recovered/Not Resolved]
  - Extra dose administered [Unknown]
